FAERS Safety Report 9279211 (Version 1)
Quarter: 2013Q2

REPORT INFORMATION
  Report Type: Spontaneous
  Country: US (occurrence: US)
  Receive Date: 20130508
  Receipt Date: 20130508
  Transmission Date: 20140414
  Serious: No
  Sender: FDA-Public Use
  Company Number: US-ASTRAZENECA-2013SE27114

PATIENT
  Age: 59 Year
  Sex: Male
  Weight: 104.3 kg

DRUGS (5)
  1. PRILOSEC [Suspect]
     Indication: GASTROOESOPHAGEAL REFLUX DISEASE
     Route: 048
     Dates: start: 201204
  2. PRILOSEC [Suspect]
     Indication: GASTROOESOPHAGEAL REFLUX DISEASE
     Route: 048
     Dates: start: 201204
  3. LOMOTRIGEN [Concomitant]
  4. REMERON [Concomitant]
  5. XANAX [Concomitant]
     Dosage: PRN

REACTIONS (2)
  - Hepatic enzyme increased [Unknown]
  - Off label use [Unknown]
